FAERS Safety Report 4527331-9 (Version None)
Quarter: 2004Q4

REPORT INFORMATION
  Report Type: 
  Country: None (occurrence: None)
  Receive Date: 20041214
  Receipt Date: 20041214
  Transmission Date: 20050328
  Serious: Yes (Hospitalization)
  Sender: FDA-Public Use
  Company Number: None

PATIENT
  Sex: Male
  Weight: 67.586 kg

DRUGS (2)
  1. PACLITAXEL [Suspect]
     Indication: CHEMOTHERAPY
     Dosage: 20 MG/M2  DAILY X 5 INTRAVENOUS
     Route: 042
     Dates: start: 20040830, end: 20040903
  2. CISPLATIN [Suspect]
     Indication: CHEMOTHERAPY
     Dosage: 15 MG/M2  DAILY X 5 INTRAVENOUS
     Route: 042
     Dates: start: 20040830, end: 20040903

REACTIONS (3)
  - DYSPHAGIA [None]
  - FLATULENCE [None]
  - OXYGEN SATURATION DECREASED [None]
